FAERS Safety Report 9981778 (Version 1)
Quarter: 2014Q1

REPORT INFORMATION
  Report Type: Spontaneous
  Country: US (occurrence: None)
  Receive Date: 20140306
  Receipt Date: 20140306
  Transmission Date: 20141002
  Serious: Yes (Other)
  Sender: FDA-Public Use
  Company Number: None

PATIENT
  Age: 61 Year
  Sex: Female

DRUGS (1)
  1. SOLUMEDROL NOT PROVIDED [Suspect]
     Indication: DRUG THERAPY
     Dates: start: 1990, end: 2013

REACTIONS (5)
  - Dizziness [None]
  - Dizziness [None]
  - Abdominal distension [None]
  - Insomnia [None]
  - No therapeutic response [None]
